FAERS Safety Report 23832221 (Version 3)
Quarter: 2024Q2

REPORT INFORMATION
  Report Type: Spontaneous
  Country: IN (occurrence: IN)
  Receive Date: 20240508
  Receipt Date: 20240514
  Transmission Date: 20240716
  Serious: Yes (Hospitalization, Other)
  Sender: FDA-Public Use
  Company Number: IN-002147023-NVSC2023IN137366

PATIENT
  Age: 48 Year
  Sex: Male

DRUGS (4)
  1. AMINEPTINE HYDROCHLORIDE [Suspect]
     Active Substance: AMINEPTINE HYDROCHLORIDE
     Indication: Product used for unknown indication
     Dosage: UNK
     Route: 065
  2. MYFORTIC [Suspect]
     Active Substance: MYCOPHENOLATE SODIUM
     Indication: Renal transplant
     Dosage: 1080 MG, QD, 360 MG, TID
     Route: 065
     Dates: start: 20230428
  3. TACROLIMUS [Suspect]
     Active Substance: TACROLIMUS
     Dosage: 1.5 MG, BID
     Route: 048
     Dates: start: 20230428
  4. TACROLIMUS [Suspect]
     Active Substance: TACROLIMUS
     Indication: Renal transplant
     Dosage: 2.5 MG, BID
     Route: 065
     Dates: start: 20230428

REACTIONS (6)
  - Sepsis [Recovered/Resolved]
  - Electrolyte imbalance [Recovered/Resolved]
  - Infection susceptibility increased [Recovered/Resolved]
  - Hypoalbuminaemia [Recovered/Resolved]
  - Urine albumin/creatinine ratio increased [Unknown]
  - Gastrointestinal disorder [Unknown]

NARRATIVE: CASE EVENT DATE: 20230501
